FAERS Safety Report 9316417 (Version 4)
Quarter: 2013Q2

REPORT INFORMATION
  Report Type: Spontaneous
  Country: US (occurrence: US)
  Receive Date: 20130530
  Receipt Date: 20130620
  Transmission Date: 20140414
  Serious: Yes (Other)
  Sender: FDA-Public Use
  Company Number: US-MERCK-1305USA016100

PATIENT
  Sex: Male

DRUGS (4)
  1. PEG-INTRON [Suspect]
     Indication: CHRONIC HEPATITIS C
     Dosage: REDIPEN
     Dates: start: 20070615, end: 20080418
  2. PEG-INTRON [Suspect]
     Dosage: REDIPEN
     Dates: start: 20130519
  3. REBETOL [Suspect]
     Dosage: UNK
     Dates: start: 20070615, end: 20080418
  4. REBETOL [Suspect]
     Dosage: UNK
     Dates: start: 20130519

REACTIONS (10)
  - Drug dependence [Unknown]
  - Drug dependence [Unknown]
  - Chromaturia [Unknown]
  - Influenza like illness [Unknown]
  - Drug ineffective [Unknown]
  - Therapeutic response decreased [Unknown]
  - Anaemia [Unknown]
  - Haemoglobin decreased [Unknown]
  - Drug dose omission [Unknown]
  - Drug dependence [Unknown]
